FAERS Safety Report 17362678 (Version 1)
Quarter: 2020Q1

REPORT INFORMATION
  Report Type: Spontaneous
  Country: HU (occurrence: HU)
  Receive Date: 20200203
  Receipt Date: 20200203
  Transmission Date: 20200409
  Serious: Yes (Other)
  Sender: FDA-Public Use
  Company Number: NVSC2019HU086851

PATIENT
  Age: 56 Year
  Sex: Female

DRUGS (5)
  1. LATANOPROST. [Concomitant]
     Active Substance: LATANOPROST
     Indication: PRODUCT USED FOR UNKNOWN INDICATION
     Dosage: UNK, DROPS
     Route: 061
  2. DEXAMETHASONE. [Suspect]
     Active Substance: DEXAMETHASONE
     Indication: PRODUCT USED FOR UNKNOWN INDICATION
     Dosage: UNK UNK, TID
     Route: 065
  3. BRINZOLAMIDE,TIMOLOL MALEATE [Suspect]
     Active Substance: BRINZOLAMIDE\TIMOLOL MALEATE
     Indication: OPEN ANGLE GLAUCOMA
     Dosage: UNK UNK, TID
     Route: 065
  4. BRINZOLAMIDE,TIMOLOL MALEATE [Suspect]
     Active Substance: BRINZOLAMIDE\TIMOLOL MALEATE
     Dosage: UNK, BID, IN BOTH EYES
     Route: 065
     Dates: start: 2014
  5. BRINZOLAMIDE [Suspect]
     Active Substance: BRINZOLAMIDE
     Indication: PRODUCT USED FOR UNKNOWN INDICATION
     Dosage: UNK UNK, TID
     Route: 065

REACTIONS (13)
  - Eye pain [Unknown]
  - Rheumatoid arthritis [Unknown]
  - Condition aggravated [Not Recovered/Not Resolved]
  - Facial pain [Unknown]
  - Inflammation [Unknown]
  - Corneal opacity [Unknown]
  - Optic nerve disorder [Unknown]
  - Intraocular pressure increased [Unknown]
  - Corneal pigmentation [Unknown]
  - Visual field tests abnormal [Unknown]
  - Pain [Unknown]
  - Retinopathy proliferative [Unknown]
  - Uveitis [Unknown]

NARRATIVE: CASE EVENT DATE: 201004
